FAERS Safety Report 24673927 (Version 2)
Quarter: 2024Q4

REPORT INFORMATION
  Report Type: Spontaneous
  Country: IT (occurrence: IT)
  Receive Date: 20241128
  Receipt Date: 20241217
  Transmission Date: 20250114
  Serious: Yes (Hospitalization, Other)
  Sender: RANBAXY
  Company Number: IT-SUN PHARMACEUTICAL INDUSTRIES LTD-2024R1-481425

PATIENT
  Age: 48 Year
  Sex: Female

DRUGS (2)
  1. FUROSEMIDE [Suspect]
     Active Substance: FUROSEMIDE
     Indication: Pericardial effusion
     Dosage: UNK
     Route: 065
  2. CANRENONE [Suspect]
     Active Substance: CANRENONE
     Indication: Pericardial effusion
     Dosage: UNK
     Route: 065

REACTIONS (2)
  - Dilated cardiomyopathy [Unknown]
  - Ejection fraction decreased [Unknown]
